FAERS Safety Report 4952085-1 (Version None)
Quarter: 2006Q1

REPORT INFORMATION
  Report Type: 
  Country: None (occurrence: None)
  Receive Date: 20060320
  Receipt Date: 20060306
  Transmission Date: 20060701
  Serious: Yes (Hospitalization)
  Sender: FDA-Public Use
  Company Number: GXKR2006ZA01405

PATIENT
  Age: 77 Year
  Sex: Female

DRUGS (7)
  1. AMITRIPTYLINE HCL [Suspect]
     Dosage: ORAL
     Route: 048
     Dates: start: 19960101
  2. ORPHENADRINE CITRATE [Suspect]
     Dosage: ORAL
     Route: 048
     Dates: start: 20020501
  3. EXEMESTANE [Concomitant]
  4. PHARMAPRESS (ENALAPRIL MALEATE) [Concomitant]
  5. WARFARIN SODIUM [Concomitant]
  6. HYDROCHLOROTHIAZIDE [Concomitant]
  7. HALOPERIDOL [Concomitant]

REACTIONS (1)
  - BLADDER DISTENSION [None]
